FAERS Safety Report 12199914 (Version 2)
Quarter: 2016Q2

REPORT INFORMATION
  Report Type: Spontaneous
  Country: US (occurrence: US)
  Receive Date: 20160322
  Receipt Date: 20160603
  Transmission Date: 20160815
  Serious: Yes (Death, Hospitalization)
  Sender: FDA-Public Use
  Company Number: US-ENDO PHARMACEUTICALS INC.-2016-001922

PATIENT
  Age: 56 Year
  Sex: Male
  Weight: 99.88 kg

DRUGS (2)
  1. TESTIM [Suspect]
     Active Substance: TESTOSTERONE
     Indication: ANDROGEN REPLACEMENT THERAPY
     Dosage: ^GEL APPLIED DAILY 2 TIMES^
     Route: 062
     Dates: start: 201008, end: 201210
  2. DHEA [Suspect]
     Active Substance: PRASTERONE
     Indication: ANDROGEN REPLACEMENT THERAPY
     Dosage: ^GEL APPLIED DAILY 2 TIMES^
     Route: 065
     Dates: start: 201008, end: 201210

REACTIONS (2)
  - Ischaemic stroke [Fatal]
  - Brain oedema [Fatal]

NARRATIVE: CASE EVENT DATE: 20121026
